FAERS Safety Report 8393931-1 (Version None)
Quarter: 2012Q2

REPORT INFORMATION
  Report Type: 
  Country: None (occurrence: None)
  Receive Date: 20120516
  Receipt Date: 20120510
  Transmission Date: 20120825
  Serious: Yes (Life-Threatening, Hospitalization)
  Sender: FDA-Public Use
  Company Number: 2012SP024909

PATIENT
  Age: 62 Year
  Sex: Female

DRUGS (12)
  1. PLAVIX [Suspect]
     Indication: CEREBROVASCULAR ACCIDENT
     Dosage: 75 MG;PO
     Route: 048
     Dates: start: 20040101, end: 20120416
  2. MIDAZOLAM HCL [Concomitant]
  3. LERCANIDIPINE [Concomitant]
  4. REMERON [Suspect]
     Indication: PRODUCT USED FOR UNKNOWN INDICATION
     Dosage: 45 MG;PO
     Route: 048
  5. VOLTAREN [Suspect]
     Indication: MULTIPLE FRACTURES
     Dosage: 1 DF;TID;PO
     Route: 048
     Dates: start: 20120201, end: 20120416
  6. JANUVIA [Suspect]
     Indication: DIABETES MELLITUS
     Dosage: 1 DF;PO
     Route: 048
     Dates: end: 20120416
  7. OXYCONTIN [Concomitant]
  8. LANTUS [Concomitant]
  9. ATORVASTATIN CALCIUM [Concomitant]
  10. ATACAND [Concomitant]
  11. NEXIUM [Concomitant]
  12. NOVORAPID [Concomitant]

REACTIONS (4)
  - HAEMOGLOBIN DECREASED [None]
  - VOMITING [None]
  - GASTROINTESTINAL HAEMORRHAGE [None]
  - GASTRIC ULCER [None]
